FAERS Safety Report 10242571 (Version 2)
Quarter: 2014Q2

REPORT INFORMATION
  Report Type: Spontaneous
  Country: GB (occurrence: GB)
  Receive Date: 20140617
  Receipt Date: 20140617
  Transmission Date: 20141212
  Serious: Yes (Other)
  Sender: FDA-Public Use
  Company Number: ALCN2008GB002600

PATIENT
  Age: 27 Year
  Sex: Male

DRUGS (6)
  1. ACETAZOLAMIDE [Suspect]
  2. ATROPINE [Suspect]
     Indication: ANTERIOR CHAMBER DISORDER
  3. DORZOLAMIDE [Suspect]
     Route: 047
  4. LATANOPROST [Suspect]
     Route: 047
  5. PILOCARPINE [Suspect]
     Indication: INTRAOCULAR PRESSURE INCREASED
     Route: 047
  6. TIMOLOL [Suspect]
     Route: 047

REACTIONS (6)
  - Anterior chamber disorder [Recovered/Resolved]
  - Intraocular pressure increased [Recovering/Resolving]
  - Visual acuity reduced [Recovering/Resolving]
  - Drug ineffective [Unknown]
  - Iridocyclitis [Unknown]
  - Hyphaema [Unknown]
